FAERS Safety Report 8287899-6 (Version None)
Quarter: 2012Q2

REPORT INFORMATION
  Report Type: 
  Country: None (occurrence: None)
  Receive Date: 20120416
  Receipt Date: 20120402
  Transmission Date: 20120825
  Serious: Yes (Hospitalization)
  Sender: FDA-Public Use
  Company Number: US-ROCHE-1019509

PATIENT
  Sex: Female
  Weight: 72.7 kg

DRUGS (8)
  1. SINGULAIR [Concomitant]
     Indication: ASTHMA
     Route: 048
     Dates: start: 20030101
  2. PREDNISOLONE [Concomitant]
     Route: 065
  3. SPIRIVA [Concomitant]
     Indication: ASTHMA
     Dates: start: 20070101
  4. OMALIZUMAB [Suspect]
     Indication: ASTHMA
     Route: 058
     Dates: start: 20070210
  5. VALSARTAN [Concomitant]
     Route: 065
  6. ALBUTEROL [Concomitant]
     Route: 065
  7. PROVENTIL [Concomitant]
     Indication: ASTHMA
     Route: 048
     Dates: start: 20010101
  8. SYMBICORT [Concomitant]
     Indication: ASTHMA
     Dates: start: 20070101

REACTIONS (3)
  - SINUSITIS [None]
  - ASTHMA [None]
  - UPPER RESPIRATORY TRACT INFECTION [None]
